FAERS Safety Report 18785124 (Version 1)
Quarter: 2021Q1

REPORT INFORMATION
  Report Type: Spontaneous
  Country: RU (occurrence: RU)
  Receive Date: 20210125
  Receipt Date: 20210125
  Transmission Date: 20210419
  Serious: Yes (Other)
  Sender: FDA-Public Use
  Company Number: RU-DSJP-DSE-2021-101910

PATIENT
  Age: 51 Year
  Sex: Male

DRUGS (3)
  1. ATTENTO [Suspect]
     Active Substance: AMLODIPINE BESYLATE\OLMESARTAN MEDOXOMIL
     Indication: HYPERTENSION
     Dosage: 40 MG /5 MG, QD
     Route: 048
     Dates: start: 202010, end: 202012
  2. ATTENTO [Suspect]
     Active Substance: AMLODIPINE BESYLATE\OLMESARTAN MEDOXOMIL
     Indication: LEFT VENTRICULAR HYPERTROPHY
  3. CRESTOR [Concomitant]
     Active Substance: ROSUVASTATIN CALCIUM
     Indication: DYSLIPIDAEMIA
     Dosage: UNK
     Dates: start: 2020, end: 2020

REACTIONS (1)
  - Erectile dysfunction [Recovered/Resolved]
